FAERS Safety Report 24316415 (Version 1)
Quarter: 2024Q3

REPORT INFORMATION
  Report Type: Report from Study
  Country: GB (occurrence: GB)
  Receive Date: 20240913
  Receipt Date: 20240913
  Transmission Date: 20241017
  Serious: Yes (Hospitalization)
  Sender: SAMSUNG BIOEPIS
  Company Number: GB-SAMSUNG BIOEPIS-SB-2024-17028

PATIENT
  Age: 33 Year
  Sex: Female

DRUGS (1)
  1. IMRALDI [Suspect]
     Active Substance: ADALIMUMAB
     Indication: Axial spondyloarthritis
     Dosage: 40MG/0.8ML;
     Route: 058
     Dates: start: 20240515

REACTIONS (8)
  - Injection site rash [Unknown]
  - Rash [Unknown]
  - Malaise [Unknown]
  - Heart rate increased [Unknown]
  - Dizziness [Unknown]
  - Pain [Unknown]
  - Malaise [Unknown]
  - Pyrexia [Unknown]
